FAERS Safety Report 17152140 (Version 4)
Quarter: 2020Q2

REPORT INFORMATION
  Report Type: Report from Study
  Country: None (occurrence: US)
  Receive Date: 20191213
  Receipt Date: 20200505
  Transmission Date: 20200713
  Serious: Yes (Other)
  Sender: FDA-Public Use
  Company Number: US-ABBVIE-19K-163-2970328-00

PATIENT
  Age: 70 Year
  Sex: Male

DRUGS (4)
  1. RITUXAN [Concomitant]
     Active Substance: RITUXIMAB
     Indication: CHRONIC LYMPHOCYTIC LEUKAEMIA
     Route: 065
     Dates: start: 2019
  2. IVIG [Concomitant]
     Active Substance: HUMAN IMMUNOGLOBULIN G
     Indication: PRODUCT USED FOR UNKNOWN INDICATION
     Route: 065
  3. RITUXAN [Concomitant]
     Active Substance: RITUXIMAB
     Route: 058
     Dates: start: 2019
  4. VENCLEXTA [Suspect]
     Active Substance: VENETOCLAX
     Indication: CHRONIC LYMPHOCYTIC LEUKAEMIA
     Route: 048
     Dates: start: 20180223

REACTIONS (37)
  - White blood cell count increased [Recovering/Resolving]
  - Dizziness [Unknown]
  - Gait disturbance [Recovering/Resolving]
  - Back pain [Unknown]
  - Cognitive disorder [Unknown]
  - Skin indentation [Unknown]
  - Memory impairment [Not Recovered/Not Resolved]
  - Haemoglobin decreased [Unknown]
  - Joint injury [Recovering/Resolving]
  - Limb injury [Recovering/Resolving]
  - Scar [Unknown]
  - Platelet disorder [Recovering/Resolving]
  - Oedema peripheral [Recovering/Resolving]
  - Fatigue [Unknown]
  - Pain in extremity [Not Recovered/Not Resolved]
  - Muscle spasms [Unknown]
  - Wheelchair user [Unknown]
  - Fall [Recovering/Resolving]
  - White blood cell count increased [Unknown]
  - Haemoglobin decreased [Not Recovered/Not Resolved]
  - Fluid retention [Unknown]
  - Lung disorder [Unknown]
  - Anaemia [Not Recovered/Not Resolved]
  - Thinking abnormal [Not Recovered/Not Resolved]
  - Peripheral swelling [Not Recovered/Not Resolved]
  - Oxygen saturation abnormal [Unknown]
  - Iron overload [Unknown]
  - Nausea [Not Recovered/Not Resolved]
  - Bursitis [Unknown]
  - Transfusion [Unknown]
  - Bone marrow disorder [Unknown]
  - Weight decreased [Not Recovered/Not Resolved]
  - Asthenia [Not Recovered/Not Resolved]
  - Fatigue [Not Recovered/Not Resolved]
  - Pyrexia [Not Recovered/Not Resolved]
  - Muscle fatigue [Unknown]
  - Back disorder [Not Recovered/Not Resolved]

NARRATIVE: CASE EVENT DATE: 2019
